FAERS Safety Report 5958231-5 (Version None)
Quarter: 2008Q4

REPORT INFORMATION
  Report Type: 
  Country: None (occurrence: None)
  Receive Date: 20081117
  Receipt Date: 20081117
  Transmission Date: 20090506
  Serious: Yes (Other)
  Sender: FDA-Public Use
  Company Number: None

PATIENT
  Sex: Female
  Weight: 55.3388 kg

DRUGS (3)
  1. RISPERDAL [Suspect]
     Indication: DEPRESSION
     Dosage: 3 MG  ONCE A DAY
     Dates: start: 20031031, end: 20080615
  2. RISPERDAL [Suspect]
     Indication: SCHIZOAFFECTIVE DISORDER
     Dosage: 3 MG  ONCE A DAY
     Dates: start: 20031031, end: 20080615
  3. LEXAPRO [Suspect]
     Indication: SCHIZOAFFECTIVE DISORDER
     Dosage: 10MG  ONCE A DAY
     Dates: start: 20080602, end: 20080615

REACTIONS (2)
  - AMNESIA [None]
  - ANGER [None]
